FAERS Safety Report 16049341 (Version 2)
Quarter: 2019Q2

REPORT INFORMATION
  Report Type: Spontaneous
  Country: MM (occurrence: MM)
  Receive Date: 20190307
  Receipt Date: 20190416
  Transmission Date: 20190711
  Serious: Yes (Life-Threatening, Hospitalization)
  Sender: FDA-Public Use
  Company Number: MM-GE HEALTHCARE LIFE SCIENCES-2019CSU001207

PATIENT

DRUGS (12)
  1. PITAVASTATIN. [Concomitant]
     Active Substance: PITAVASTATIN CALCIUM
     Dosage: 2 MG, QD
     Route: 048
  2. EMPAGLIFLOZIN [Concomitant]
     Active Substance: EMPAGLIFLOZIN
     Dosage: 10 MG, QD
     Route: 048
  3. OXYGEN. [Concomitant]
     Active Substance: OXYGEN
     Dosage: UNK
     Dates: start: 20190224, end: 20190224
  4. PANZOL D [Concomitant]
     Dosage: 1 TABLET BID FOR FOUR DAYS
     Route: 048
  5. GLUCOPHAGE [Concomitant]
     Active Substance: METFORMIN HYDROCHLORIDE
     Dosage: 1000 MG, QD
     Route: 048
  6. XANAX [Concomitant]
     Active Substance: ALPRAZOLAM
     Dosage: 1 DF, UNK
     Route: 048
  7. OMNIPAQUE [Suspect]
     Active Substance: IOHEXOL
     Indication: CHRONIC HEPATITIS B
     Dosage: 100 ML, SINGLE
     Route: 042
     Dates: start: 20190224, end: 20190224
  8. OMNIPAQUE [Suspect]
     Active Substance: IOHEXOL
     Indication: COMPUTERISED TOMOGRAM ABDOMEN
  9. NOVOMIX [Concomitant]
     Active Substance: INSULIN ASPART
     Dosage: 10 UT, BID  IF RBS } 180 MG % FOR FOUR DAYS
     Route: 058
  10. AVOLAC [Concomitant]
     Dosage: 200 ML, QD FOR FOUR DAYS
     Route: 048
  11. PANZOL D [Concomitant]
     Dosage: 1 TABLET BID FOR ONE MONTH
     Route: 048
     Dates: start: 20190103
  12. NOVOMIX [Concomitant]
     Active Substance: INSULIN ASPART
     Dosage: 16 UT, BID FOR 30 DAYS
     Route: 058
     Dates: start: 20190113

REACTIONS (1)
  - Anaphylactic shock [Recovered/Resolved]

NARRATIVE: CASE EVENT DATE: 20190224
